FAERS Safety Report 24786795 (Version 1)
Quarter: 2024Q4

REPORT INFORMATION
  Report Type: Spontaneous
  Country: JP (occurrence: JP)
  Receive Date: 20241230
  Receipt Date: 20241230
  Transmission Date: 20250114
  Serious: Yes (Hospitalization)
  Sender: BIOVITRUM
  Company Number: JP-ASTRAZENECA-240102262_070810_P_1

PATIENT
  Age: 2 Year
  Sex: Male
  Weight: 9 kg

DRUGS (6)
  1. SYNAGIS [Suspect]
     Active Substance: PALIVIZUMAB
     Indication: Antiviral prophylaxis
     Dosage: DOSE UNKNOWN
     Route: 030
  2. SYNAGIS [Suspect]
     Active Substance: PALIVIZUMAB
     Dosage: DOSE OF BODY WEIGHT EQUIVALENTS, DOSE UNKNOWN
     Route: 030
     Dates: start: 20240514, end: 20240514
  3. SYNAGIS [Suspect]
     Active Substance: PALIVIZUMAB
     Dosage: DOSE OF BODY WEIGHT EQUIVALENTS, DOSE UNKNOWN
     Route: 030
     Dates: start: 20240611, end: 20240611
  4. SYNAGIS [Suspect]
     Active Substance: PALIVIZUMAB
     Dosage: DOSE OF BODY WEIGHT EQUIVALENTS, DOSE UNKNOWN
     Route: 030
     Dates: start: 20240709
  5. SYNAGIS [Suspect]
     Active Substance: PALIVIZUMAB
     Dosage: 100 MILLIGRAM
     Route: 030
     Dates: start: 20240709
  6. SYNAGIS [Suspect]
     Active Substance: PALIVIZUMAB
     Route: 030

REACTIONS (2)
  - Respiratory syncytial virus test positive [Unknown]
  - Liver function test increased [Recovered/Resolved]

NARRATIVE: CASE EVENT DATE: 20240801
